FAERS Safety Report 10264496 (Version 1)
Quarter: 2014Q2

REPORT INFORMATION
  Report Type: Spontaneous
  Country: US (occurrence: US)
  Receive Date: 20140627
  Receipt Date: 20140627
  Transmission Date: 20141212
  Serious: No
  Sender: FDA-Public Use
  Company Number: US-BRACCO-010891

PATIENT
  Age: 27 Year
  Sex: Male

DRUGS (5)
  1. PROHANCE [Suspect]
     Indication: DIAGNOSTIC PROCEDURE
     Route: 042
     Dates: start: 20140411, end: 20140411
  2. HEPARIN [Concomitant]
     Dosage: 5000 UNITS/ 1 ML
     Route: 058
     Dates: start: 20140411, end: 20140412
  3. OXYCODONE / ACETAMINOPHEN [Concomitant]
     Indication: PAIN
     Dosage: 5MG/325MG EVERY 4 HOURS AS NEEDED/PAIN 4-10
     Route: 048
     Dates: start: 20140411, end: 20140412
  4. AMICIPROX [Concomitant]
     Dosage: CIPROFLOXACIN/ DEXTROSE 200ML 400MG DAILY INFUSE OVER 90 MIN
     Dates: start: 20140411, end: 20140412
  5. SODIUM CHLORIDE [Concomitant]
     Dosage: 1000ML 80 ML/HR
     Dates: start: 20140411, end: 20140412

REACTIONS (3)
  - Choking [Recovered/Resolved]
  - Dyspnoea [Recovered/Resolved]
  - Vomiting [Recovered/Resolved]
